FAERS Safety Report 18986464 (Version 1)
Quarter: 2021Q1

REPORT INFORMATION
  Report Type: Spontaneous
  Country: US (occurrence: US)
  Receive Date: 20210309
  Receipt Date: 20210309
  Transmission Date: 20210420
  Serious: Yes (Other)
  Sender: FDA-Public Use
  Company Number: US-APOTEX-2021AP004851

PATIENT
  Sex: Female

DRUGS (2)
  1. MIRTAZAPINE. [Suspect]
     Active Substance: MIRTAZAPINE
     Indication: INCREASED APPETITE
     Dosage: UNK UNK, Q.H.S. (HALF TABLET)
     Route: 048
     Dates: start: 20210221
  2. MIRTAZAPINE. [Suspect]
     Active Substance: MIRTAZAPINE
     Dosage: UNK, QUARTER TABLET
     Route: 048
     Dates: end: 20210227

REACTIONS (7)
  - Sleep talking [Recovered/Resolved]
  - Hypersomnia [Recovering/Resolving]
  - Hallucination [Recovered/Resolved]
  - Logorrhoea [Recovered/Resolved]
  - Hyperphagia [Recovering/Resolving]
  - Confusional state [Recovering/Resolving]
  - Inappropriate affect [Recovering/Resolving]

NARRATIVE: CASE EVENT DATE: 20210221
